FAERS Safety Report 9325612 (Version 1)
Quarter: 2013Q2

REPORT INFORMATION
  Report Type: Spontaneous
  Country: CH (occurrence: CH)
  Receive Date: 20130604
  Receipt Date: 20130604
  Transmission Date: 20140414
  Serious: Yes (Hospitalization, Other)
  Sender: FDA-Public Use
  Company Number: CH-JNJFOC-20130520622

PATIENT
  Age: 2 Decade
  Sex: Male
  Weight: 75 kg

DRUGS (5)
  1. REMICADE [Suspect]
     Indication: CROHN^S DISEASE
     Route: 042
     Dates: start: 2011, end: 2011
  2. AZATHIOPRINE [Concomitant]
     Indication: CROHN^S DISEASE
     Route: 065
     Dates: start: 201012
  3. CORTICOSTEROIDS [Concomitant]
     Indication: CROHN^S DISEASE
     Route: 065
     Dates: start: 201012
  4. OMEPRAZOLE [Concomitant]
     Route: 065
     Dates: start: 201012
  5. CALCIUM [Concomitant]
     Route: 065
     Dates: start: 201012

REACTIONS (1)
  - Ileal stenosis [Recovered/Resolved]
